FAERS Safety Report 22656209 (Version 1)
Quarter: 2023Q2

REPORT INFORMATION
  Report Type: Spontaneous
  Country: FR (occurrence: FR)
  Receive Date: 20230629
  Receipt Date: 20230629
  Transmission Date: 20230722
  Serious: Yes (Hospitalization)
  Sender: FDA-Public Use
  Company Number: FR-002147023-NVSC2023FR148282

PATIENT
  Age: 16 Year
  Sex: Male

DRUGS (2)
  1. KETOPROFEN [Suspect]
     Active Substance: KETOPROFEN
     Indication: Muscle rupture
     Dosage: 100 MG, BID
     Route: 065
  2. AMOXICILLIN [Suspect]
     Active Substance: AMOXICILLIN
     Indication: Tonsillitis streptococcal
     Dosage: UNK
     Route: 065

REACTIONS (3)
  - Cellulitis [Recovering/Resolving]
  - Odynophagia [Unknown]
  - Dysphagia [Unknown]
